FAERS Safety Report 8776913 (Version 1)
Quarter: 2012Q4

REPORT INFORMATION
  Report Type: 
  Country: DE (occurrence: DE)
  Receive Date: 20120911
  Receipt Date: 20120911
  Transmission Date: 20130627
  Serious: Yes (Other)
  Sender: FDA-Public Use
  Company Number: DE-TEVA-356672GER

PATIENT
  Age: 43 Year
  Sex: Female

DRUGS (3)
  1. SULFAMETHOXAZOLE\TRIMETHOPRIM [Suspect]
     Indication: CYSTITIS
     Dosage: 2 Tablet Daily; 800 mg SULFAMETHOXAZOLE and 160 mg TRIMETHOPRIM
     Route: 048
     Dates: start: 20120821, end: 20120828
  2. EBASTEL [Concomitant]
  3. COLESTYRAMINE [Concomitant]

REACTIONS (3)
  - VIIth nerve paralysis [Recovering/Resolving]
  - Neuritis [Recovering/Resolving]
  - Facial pain [Recovering/Resolving]
